FAERS Safety Report 24238621 (Version 1)
Quarter: 2024Q3

REPORT INFORMATION
  Report Type: Report from Study
  Country: US (occurrence: US)
  Receive Date: 20240822
  Receipt Date: 20240822
  Transmission Date: 20241016
  Serious: Yes (Hospitalization)
  Sender: EMD SERONO INC
  Company Number: US-Merck Healthcare KGaA-2024043793

PATIENT
  Sex: Male
  Weight: 4 kg

DRUGS (1)
  1. REBIF [Suspect]
     Active Substance: INTERFERON BETA-1A
     Indication: Multiple sclerosis
     Route: 064

REACTIONS (5)
  - Jaundice neonatal [Unknown]
  - Neonatal pulmonary hypertension [Unknown]
  - Asphyxia [Unknown]
  - Injury [Unknown]
  - Foetal exposure during pregnancy [Recovered/Resolved]
